FAERS Safety Report 4652577-9 (Version None)
Quarter: 2005Q2

REPORT INFORMATION
  Report Type: 
  Country: None (occurrence: None)
  Receive Date: 20050504
  Receipt Date: 20050426
  Transmission Date: 20051028
  Serious: Yes (Hospitalization)
  Sender: FDA-Public Use
  Company Number: US-JNJFOC-20050406837

PATIENT
  Age: 35 Year
  Sex: Female
  Weight: 78.02 kg

DRUGS (7)
  1. DURAGESIC-100 [Suspect]
     Indication: MIGRAINE
     Route: 062
  2. PHENERGAN [Concomitant]
  3. METHADONE HCL [Concomitant]
  4. ZANAFLEX [Concomitant]
  5. ATIVAN [Concomitant]
  6. LORTAB [Concomitant]
  7. LORTAB [Concomitant]

REACTIONS (6)
  - DIARRHOEA [None]
  - DRUG WITHDRAWAL SYNDROME [None]
  - OFF LABEL USE [None]
  - PAIN [None]
  - PYREXIA [None]
  - VOMITING [None]
